FAERS Safety Report 4450220-5 (Version None)
Quarter: 2004Q3

REPORT INFORMATION
  Report Type: 
  Country: None (occurrence: None)
  Receive Date: 20040914
  Receipt Date: 20040901
  Transmission Date: 20050211
  Serious: Yes (Hospitalization)
  Sender: FDA-Public Use
  Company Number: 2004231467ES

PATIENT
  Age: 33 Year
  Sex: 0

DRUGS (1)
  1. GENOTROPIN(SOMATROPIN) POWDER, STERILE [Suspect]
     Indication: HYPOPITUITARISM
     Dosage: 0.4 MG , QD
     Dates: start: 20000626, end: 20031209

REACTIONS (2)
  - CRANIOPHARYNGIOMA [None]
  - NEOPLASM RECURRENCE [None]
